FAERS Safety Report 7354579-0 (Version None)
Quarter: 2011Q1

REPORT INFORMATION
  Report Type: 
  Country: None (occurrence: None)
  Receive Date: 20110316
  Receipt Date: 20110304
  Transmission Date: 20110831
  Serious: Yes (Hospitalization)
  Sender: FDA-Public Use
  Company Number: JP-BAYER-200911722BYL

PATIENT
  Age: 61 Year
  Sex: Male
  Weight: 66 kg

DRUGS (18)
  1. LAC B [Concomitant]
     Dosage: 3 G, QD
     Route: 048
     Dates: start: 20080829, end: 20080909
  2. PENTCILLIN [Concomitant]
     Dosage: 2 G, QD
     Route: 042
     Dates: start: 20090422, end: 20090501
  3. MAGNESIUM OXIDE [Concomitant]
     Dosage: 1 G, QD
     Route: 048
     Dates: start: 20080823, end: 20090225
  4. UBRETID [Concomitant]
     Dosage: 5 MG, QD
     Route: 048
     Dates: start: 20090114, end: 20090128
  5. LOXONIN [Concomitant]
     Dosage: 180 MG, QD
     Route: 048
     Dates: start: 20090210, end: 20090506
  6. MOBIC [Concomitant]
     Dosage: 10 MG, QD
     Route: 048
     Dates: start: 20090325, end: 20090506
  7. CONSTAN [Concomitant]
     Dosage: 1.2 MG, QD
     Route: 048
     Dates: start: 20090425, end: 20090515
  8. NEXAVAR [Suspect]
     Indication: RENAL CELL CARCINOMA
     Dosage: 400 MG, BID
     Route: 048
     Dates: start: 20080821, end: 20081015
  9. SELBEX [Concomitant]
     Dosage: 50 MG, TID
     Route: 048
     Dates: start: 20090210, end: 20090325
  10. CRAVIT [Concomitant]
     Dosage: 300 MG, QD
     Route: 048
     Dates: start: 20090408, end: 20090415
  11. RHYTHMY [Concomitant]
     Dosage: 2 MG, QD
     Route: 048
     Dates: start: 20090424, end: 20090515
  12. NEXAVAR [Suspect]
     Dosage: 400 MG, QD
     Route: 048
     Dates: start: 20081016, end: 20090506
  13. TAGAMET [Concomitant]
     Dosage: 800 MG, QD
     Route: 048
     Dates: start: 20090325, end: 20090506
  14. LAC B [Concomitant]
     Dosage: 3 G QD
     Route: 048
     Dates: start: 20090206, end: 20090506
  15. FERROUS CITRATE [Concomitant]
     Dosage: 100 MG, QD
     Route: 048
     Dates: start: 20080902, end: 20081022
  16. TAMSULOSIN HCL [Concomitant]
     Dosage: 0.2 MG, QD
     Route: 048
     Dates: start: 20090114, end: 20090225
  17. BLOPRESS [Concomitant]
     Dosage: 4 MG, QD
     Route: 048
     Dates: start: 20090325, end: 20090506
  18. VOLTAREN [Concomitant]
     Dosage: 50 MG, QD
     Route: 054
     Dates: start: 20090408, end: 20090415

REACTIONS (5)
  - DECUBITUS ULCER [None]
  - BLOOD AMYLASE INCREASED [None]
  - INFECTED SKIN ULCER [None]
  - PALMAR-PLANTAR ERYTHRODYSAESTHESIA SYNDROME [None]
  - DIARRHOEA [None]
